FAERS Safety Report 4918449-7 (Version None)
Quarter: 2006Q1

REPORT INFORMATION
  Report Type: 
  Country: None (occurrence: None)
  Receive Date: 20060214
  Receipt Date: 20060131
  Transmission Date: 20060701
  Serious: Yes (Other)
  Sender: FDA-Public Use
  Company Number: 13305

PATIENT
  Age: 62 Year
  Sex: Male
  Weight: 83 kg

DRUGS (5)
  1. FLUOROURACIL [Suspect]
     Indication: BILIARY NEOPLASM
     Dosage: 375 MG/M2 DAILY; IV
     Route: 042
     Dates: start: 20050502, end: 20051223
  2. LEUCOVORIN CALCIUM [Suspect]
     Indication: BILIARY NEOPLASM
     Dosage: 25 MG/M2 DAILY; IV
     Route: 042
     Dates: start: 20050502, end: 20051223
  3. METFORMIN HYDROCHLORIDE [Concomitant]
  4. INSULIN HUMAN [Concomitant]
  5. CIPROFLOXACIN [Concomitant]

REACTIONS (1)
  - NEUTROPENIA [None]
